FAERS Safety Report 6175934-0 (Version None)
Quarter: 2009Q2

REPORT INFORMATION
  Report Type: 
  Country: None (occurrence: None)
  Receive Date: 20090501
  Receipt Date: 20090421
  Transmission Date: 20091009
  Serious: Yes (Hospitalization)
  Sender: FDA-Public Use
  Company Number: PHHO2009GB05213

PATIENT
  Sex: Male
  Weight: 101 kg

DRUGS (8)
  1. ZOLEDRONIC ACID [Suspect]
     Dosage: 4 MG, UNK
     Route: 042
     Dates: start: 20081114
  2. DOCETAXEL [Suspect]
  3. CALCIUM [Concomitant]
  4. VITAMIN D [Concomitant]
  5. ATENOLOL [Concomitant]
  6. SIMVASTATIN [Concomitant]
  7. BENDROFLUAZIDE [Concomitant]
  8. RAMIPRIL [Concomitant]

REACTIONS (3)
  - NEUTROPENIA [None]
  - NEUTROPENIC SEPSIS [None]
  - PYREXIA [None]
